FAERS Safety Report 5080144-4 (Version None)
Quarter: 2006Q3

REPORT INFORMATION
  Report Type: 
  Country: None (occurrence: None)
  Receive Date: 20060810
  Receipt Date: 20060731
  Transmission Date: 20061208
  Serious: Yes (Other)
  Sender: FDA-Public Use
  Company Number: 2006094918

PATIENT
  Sex: Male

DRUGS (3)
  1. LIPITOR [Suspect]
     Indication: DRUG USE FOR UNKNOWN INDICATION
     Dosage: ORAL
     Route: 048
  2. MICARDIS [Concomitant]
  3. WARFARIN SODIUM [Concomitant]

REACTIONS (4)
  - ARTHRALGIA [None]
  - BLOOD IRON INCREASED [None]
  - INSOMNIA [None]
  - MYALGIA [None]
